FAERS Safety Report 4825211-2 (Version None)
Quarter: 2005Q4

REPORT INFORMATION
  Report Type: 
  Country: None (occurrence: None)
  Receive Date: 20051109
  Receipt Date: 20051109
  Transmission Date: 20060501
  Serious: No
  Sender: FDA-Public Use
  Company Number: None

PATIENT
  Age: 57 Year
  Sex: Male
  Weight: 77 kg

DRUGS (2)
  1. CO-TRIMOXAZOLE [Suspect]
     Indication: SERRATIA INFECTION
     Dosage: 160MG/800MG IT Q 6H
     Route: 037
  2. CO-TRIMOXAZOLE [Suspect]
     Indication: STENOTROPHOMONAS INFECTION
     Dosage: 160MG/800MG IT Q 6H
     Route: 037

REACTIONS (1)
  - HYPERKALAEMIA [None]
